FAERS Safety Report 16368072 (Version 1)
Quarter: 2019Q2

REPORT INFORMATION
  Report Type: Spontaneous
  Country: GB (occurrence: GB)
  Receive Date: 20190529
  Receipt Date: 20190529
  Transmission Date: 20190711
  Serious: Yes (Other)
  Sender: FDA-Public Use
  Company Number: GB-MYLANLABS-2019M1050133

PATIENT
  Age: 70 Year
  Sex: Female

DRUGS (5)
  1. PARACETAMOL [Concomitant]
     Active Substance: ACETAMINOPHEN
  2. MEMANTINE. [Suspect]
     Active Substance: MEMANTINE
     Indication: DEMENTIA ALZHEIMER^S TYPE
     Dosage: 5 MILLIGRAM
     Route: 048
     Dates: start: 20180802
  3. PRIMIDONE. [Concomitant]
     Active Substance: PRIMIDONE
  4. CHLORPROMAZINE. [Concomitant]
     Active Substance: CHLORPROMAZINE
  5. CODEINE PHOSPHATE [Concomitant]
     Active Substance: CODEINE PHOSPHATE

REACTIONS (2)
  - Cardiac failure congestive [Not Recovered/Not Resolved]
  - Oedema peripheral [Not Recovered/Not Resolved]
